FAERS Safety Report 9550038 (Version 1)
Quarter: 2013Q3

REPORT INFORMATION
  Report Type: Spontaneous
  Country: GB (occurrence: GB)
  Receive Date: 20130924
  Receipt Date: 20130924
  Transmission Date: 20140515
  Serious: Yes (Hospitalization)
  Sender: FDA-Public Use
  Company Number: PHHY2013GB104943

PATIENT
  Age: 75 Year
  Sex: Female

DRUGS (6)
  1. LEFLUNOMIDE [Suspect]
     Indication: RHEUMATOID ARTHRITIS
     Dosage: 10 MG, UNK
     Route: 048
     Dates: start: 20061103, end: 20130530
  2. BENDROFLUMETHIAZIDE [Concomitant]
     Dosage: 2.5 MG, QD
     Route: 048
  3. CHLORDIAZEPOXIDE [Concomitant]
     Dosage: 5 MG, QD
     Route: 048
  4. LEVOTHYROXINE [Concomitant]
     Dosage: 100 UG, QD
  5. RAMIPRIL [Concomitant]
     Dosage: 2.5 MG, QD
  6. PARACETAMOL [Concomitant]
     Dosage: 1 G, QID PRN

REACTIONS (5)
  - Panniculitis [Recovering/Resolving]
  - Pseudobulbar palsy [Recovering/Resolving]
  - General physical health deterioration [Recovering/Resolving]
  - Pain [Recovering/Resolving]
  - Skin ulcer [Recovering/Resolving]
